FAERS Safety Report 20128207 (Version 1)
Quarter: 2021Q4

REPORT INFORMATION
  Report Type: Spontaneous
  Country: JP (occurrence: JP)
  Receive Date: 20211129
  Receipt Date: 20211129
  Transmission Date: 20220303
  Serious: Yes (Other)
  Sender: FDA-Public Use
  Company Number: JP-SUN PHARMACEUTICAL INDUSTRIES LTD-2021R1-319098

PATIENT
  Age: 34 Year
  Sex: Female

DRUGS (7)
  1. METHIMAZOLE [Suspect]
     Active Substance: METHIMAZOLE
     Indication: Basedow^s disease
     Dosage: 30 MILLIGRAM, DAILY
     Route: 048
  2. METHIMAZOLE [Suspect]
     Active Substance: METHIMAZOLE
     Dosage: 25 MILLIGRAM, DAILY
     Route: 048
  3. METHIMAZOLE [Suspect]
     Active Substance: METHIMAZOLE
     Dosage: 15 MILLIGRAM, DAILY
     Route: 048
  4. LEVOTHYROXINE SODIUM [Suspect]
     Active Substance: LEVOTHYROXINE SODIUM
     Indication: Basedow^s disease
     Dosage: 50 MICROGRAM, DAILY
     Route: 065
  5. POTASSIUM IODIDE [Suspect]
     Active Substance: POTASSIUM IODIDE
     Indication: Basedow^s disease
     Dosage: 200 MILLIGRAM, DAILY
     Route: 048
  6. POTASSIUM IODIDE [Suspect]
     Active Substance: POTASSIUM IODIDE
     Dosage: 100 MILLIGRAM, DAILY
     Route: 048
  7. POTASSIUM IODIDE [Suspect]
     Active Substance: POTASSIUM IODIDE
     Dosage: 150 MILLIGRAM, DAILY
     Route: 048

REACTIONS (3)
  - Exposure during pregnancy [Unknown]
  - Premature delivery [Unknown]
  - Condition aggravated [Unknown]
